FAERS Safety Report 9772213 (Version 1)
Quarter: 2013Q4

REPORT INFORMATION
  Report Type: Spontaneous
  Country: US (occurrence: US)
  Receive Date: 20131219
  Receipt Date: 20131219
  Transmission Date: 20140711
  Serious: Yes (Death, Hospitalization)
  Sender: FDA-Public Use
  Company Number: US-CELGENEUS-163-21880-13121329

PATIENT
  Age: 62 Year
  Sex: 0

DRUGS (12)
  1. REVLIMID [Suspect]
     Indication: OFF LABEL USE
     Dosage: 5 MILLIGRAM
     Route: 048
  2. REVLIMID [Suspect]
     Indication: LYMPHOCYTIC LEUKAEMIA
  3. REVLIMID [Suspect]
     Indication: CHRONIC LYMPHOCYTIC LEUKAEMIA
  4. PREDNISONE [Concomitant]
     Indication: CHRONIC LYMPHOCYTIC LEUKAEMIA
     Route: 065
  5. PREDNISONE [Concomitant]
     Indication: LYMPHOCYTIC LYMPHOMA
     Dosage: 60 MILLIGRAM
     Route: 065
  6. PREDNISONE [Concomitant]
     Indication: BACK PAIN
  7. AMLODIPINE [Concomitant]
     Indication: PRODUCT USED FOR UNKNOWN INDICATION
     Dosage: 5 MILLIGRAM
     Route: 065
  8. ATORVASTATIN [Concomitant]
     Indication: PRODUCT USED FOR UNKNOWN INDICATION
     Dosage: 80 MILLIGRAM
     Route: 065
  9. METOPROLOL SUCCINATE [Concomitant]
     Indication: PRODUCT USED FOR UNKNOWN INDICATION
     Dosage: 25 MILLIGRAM
     Route: 065
  10. OMEPRAZOLE [Concomitant]
     Indication: PRODUCT USED FOR UNKNOWN INDICATION
     Dosage: 20 MILLIGRAM
     Route: 065
  11. HYDROMORPHONE [Concomitant]
     Indication: PAIN
     Route: 065
  12. ONDANSETRON [Concomitant]
     Indication: NAUSEA
     Dosage: 12 MILLIGRAM
     Route: 065

REACTIONS (4)
  - Death [Fatal]
  - Haemolytic anaemia [Unknown]
  - Tumour lysis syndrome [Unknown]
  - Septic shock [Unknown]
